FAERS Safety Report 13335269 (Version 1)
Quarter: 2017Q1

REPORT INFORMATION
  Report Type: Spontaneous
  Country: US (occurrence: US)
  Receive Date: 20170314
  Receipt Date: 20170314
  Transmission Date: 20170428
  Serious: No
  Sender: FDA-Public Use
  Company Number: US-GALDERMA-US16001561

PATIENT
  Age: 29 Year
  Sex: Female

DRUGS (5)
  1. ZEST IVORY SOAP [Concomitant]
     Route: 061
  2. TRI-LUMA [Suspect]
     Active Substance: FLUOCINOLONE ACETONIDE\HYDROQUINONE\TRETINOIN
     Indication: CHLOASMA
     Route: 061
     Dates: start: 201602
  3. VINEGAR BASE CLEANSING PRODUCT [Concomitant]
     Route: 061
  4. TRI-LUMA [Suspect]
     Active Substance: FLUOCINOLONE ACETONIDE\HYDROQUINONE\TRETINOIN
     Route: 061
     Dates: start: 200910, end: 201101
  5. LUMINESS COSMETICS [Concomitant]
     Route: 061
     Dates: start: 201405, end: 201604

REACTIONS (3)
  - Rash macular [Recovered/Resolved]
  - Intentional product misuse [Recovered/Resolved]
  - Skin exfoliation [Recovered/Resolved]

NARRATIVE: CASE EVENT DATE: 200910
